FAERS Safety Report 8622514-0 (Version None)
Quarter: 2012Q3

REPORT INFORMATION
  Report Type: 
  Country: None (occurrence: None)
  Receive Date: 20120827
  Receipt Date: 20120822
  Transmission Date: 20120928
  Serious: No
  Sender: FDA-Public Use
  Company Number: US-PFIZER INC-2012156199

PATIENT
  Age: 66 Year
  Sex: Male
  Weight: 74.83 kg

DRUGS (7)
  1. CRESTOR [Concomitant]
     Indication: BLOOD CHOLESTEROL INCREASED
     Dosage: UNK
  2. INLYTA [Suspect]
     Indication: RENAL CANCER
     Dosage: 5 MG, 2X/DAY
     Route: 048
     Dates: start: 20120701
  3. DOCULAX [Concomitant]
     Dosage: UNK
  4. INLYTA [Suspect]
     Dosage: 10 MG, 2X/DAY
     Route: 048
     Dates: start: 20120801
  5. COREG [Concomitant]
     Dosage: UNK
  6. XANAX [Concomitant]
     Indication: DEPRESSION
     Dosage: UNK
  7. ASPIRIN [Concomitant]
     Dosage: UNK, 1X/DAY

REACTIONS (9)
  - EPISTAXIS [None]
  - SNEEZING [None]
  - VOMITING [None]
  - OROPHARYNGEAL PAIN [None]
  - BLOOD CREATININE INCREASED [None]
  - RHINORRHOEA [None]
  - CONSTIPATION [None]
  - NEUTROPHIL PERCENTAGE INCREASED [None]
  - RED BLOOD CELL COUNT INCREASED [None]
